FAERS Safety Report 10574068 (Version 2)
Quarter: 2014Q4

REPORT INFORMATION
  Report Type: Spontaneous
  Country: IT (occurrence: IT)
  Receive Date: 20141110
  Receipt Date: 20141117
  Transmission Date: 20150529
  Serious: Yes (Hospitalization)
  Sender: FDA-Public Use
  Company Number: IT-BRISTOL-MYERS SQUIBB COMPANY-21542485

PATIENT
  Age: 55 Year
  Sex: Female

DRUGS (7)
  1. ESKIM [Concomitant]
     Active Substance: OMEGA-3 FATTY ACIDS
  2. ORENCIA [Suspect]
     Active Substance: ABATACEPT
     Indication: RHEUMATOID ARTHRITIS
     Route: 042
     Dates: start: 20140228
  3. DIBASE [Concomitant]
     Active Substance: CHOLECALCIFEROL
  4. SIMVASTATIN. [Concomitant]
     Active Substance: SIMVASTATIN
  5. NATECAL D [Concomitant]
     Active Substance: CALCIUM CARBONATE\CHOLECALCIFEROL
  6. LANSOPRAZOLE. [Concomitant]
     Active Substance: LANSOPRAZOLE
  7. SALAZOPYRIN [Concomitant]
     Active Substance: SULFASALAZINE

REACTIONS (2)
  - Chest discomfort [Recovering/Resolving]
  - Abdominal pain upper [Recovering/Resolving]

NARRATIVE: CASE EVENT DATE: 20141005
